FAERS Safety Report 9471442 (Version 1)
Quarter: 2013Q3

REPORT INFORMATION
  Report Type: Spontaneous
  Country: IT (occurrence: IT)
  Receive Date: 20130822
  Receipt Date: 20130822
  Transmission Date: 20140515
  Serious: Yes (Hospitalization)
  Sender: FDA-Public Use
  Company Number: IT-ABBOTT-13X-083-1136068-00

PATIENT
  Age: 27 Year
  Sex: Male

DRUGS (3)
  1. DEPAKIN CHRONO [Suspect]
     Indication: INTENTIONAL SELF-INJURY
     Route: 048
     Dates: start: 20130808, end: 20130808
  2. QUETIAPINE FUMARATE [Suspect]
     Indication: INTENTIONAL SELF-INJURY
     Route: 048
     Dates: start: 20130808, end: 20130808
  3. FLURAZEPAM [Suspect]
     Indication: INTENTIONAL SELF-INJURY
     Route: 048
     Dates: start: 20130808, end: 20130808

REACTIONS (5)
  - Speech disorder [Recovering/Resolving]
  - Facial bones fracture [Recovering/Resolving]
  - Fall [Recovering/Resolving]
  - Sopor [Recovering/Resolving]
  - Drug abuse [Unknown]
